FAERS Safety Report 9307991 (Version 2)
Quarter: 2013Q3

REPORT INFORMATION
  Report Type: Spontaneous
  Country: US (occurrence: US)
  Receive Date: 20130524
  Receipt Date: 20130722
  Transmission Date: 20140515
  Serious: Yes (Hospitalization)
  Sender: FDA-Public Use
  Company Number: US-ELI_LILLY_AND_COMPANY-US201305006296

PATIENT
  Age: 48 Year
  Sex: Female
  Weight: 68.2 kg

DRUGS (1)
  1. HUMALOG LISPRO [Suspect]
     Dosage: UNK

REACTIONS (2)
  - Pneumonia [Unknown]
  - Blood glucose decreased [Unknown]
